FAERS Safety Report 25128367 (Version 2)
Quarter: 2025Q2

REPORT INFORMATION
  Report Type: Spontaneous
  Country: US (occurrence: US)
  Receive Date: 20250327
  Receipt Date: 20250411
  Transmission Date: 20250717
  Serious: Yes (Life-Threatening, Hospitalization)
  Sender: MYLAN
  Company Number: US-MYLANLABS-2025M1025885

PATIENT
  Age: 58 Year
  Sex: Female

DRUGS (32)
  1. VERAPAMIL [Interacting]
     Active Substance: VERAPAMIL HYDROCHLORIDE
     Indication: Migraine prophylaxis
     Dosage: 180 MILLIGRAM, BID (~FOR OVER 10 YEARS)
  2. VERAPAMIL [Interacting]
     Active Substance: VERAPAMIL HYDROCHLORIDE
     Dosage: 180 MILLIGRAM, BID (~FOR OVER 10 YEARS)
     Route: 065
  3. VERAPAMIL [Interacting]
     Active Substance: VERAPAMIL HYDROCHLORIDE
     Dosage: 180 MILLIGRAM, BID (~FOR OVER 10 YEARS)
     Route: 065
  4. VERAPAMIL [Interacting]
     Active Substance: VERAPAMIL HYDROCHLORIDE
     Dosage: 180 MILLIGRAM, BID (~FOR OVER 10 YEARS)
  5. PAXLOVID [Interacting]
     Active Substance: NIRMATRELVIR\RITONAVIR
     Indication: COVID-19
  6. PAXLOVID [Interacting]
     Active Substance: NIRMATRELVIR\RITONAVIR
     Route: 065
  7. PAXLOVID [Interacting]
     Active Substance: NIRMATRELVIR\RITONAVIR
     Route: 065
  8. PAXLOVID [Interacting]
     Active Substance: NIRMATRELVIR\RITONAVIR
  9. SPIRONOLACTONE [Concomitant]
     Active Substance: SPIRONOLACTONE
     Indication: Hypertension
  10. SPIRONOLACTONE [Concomitant]
     Active Substance: SPIRONOLACTONE
     Route: 065
  11. SPIRONOLACTONE [Concomitant]
     Active Substance: SPIRONOLACTONE
     Route: 065
  12. SPIRONOLACTONE [Concomitant]
     Active Substance: SPIRONOLACTONE
  13. LASIX [Concomitant]
     Active Substance: FUROSEMIDE
     Indication: Hypertension
     Dosage: 40 MILLIGRAM, QD
  14. LASIX [Concomitant]
     Active Substance: FUROSEMIDE
     Dosage: 40 MILLIGRAM, QD
     Route: 065
  15. LASIX [Concomitant]
     Active Substance: FUROSEMIDE
     Dosage: 40 MILLIGRAM, QD
     Route: 065
  16. LASIX [Concomitant]
     Active Substance: FUROSEMIDE
     Dosage: 40 MILLIGRAM, QD
  17. LACTULOSE [Concomitant]
     Active Substance: LACTULOSE
     Indication: Hepatic encephalopathy
  18. LACTULOSE [Concomitant]
     Active Substance: LACTULOSE
     Route: 065
  19. LACTULOSE [Concomitant]
     Active Substance: LACTULOSE
     Route: 065
  20. LACTULOSE [Concomitant]
     Active Substance: LACTULOSE
  21. RIFAXIMIN [Concomitant]
     Active Substance: RIFAXIMIN
     Indication: Hepatic encephalopathy
  22. RIFAXIMIN [Concomitant]
     Active Substance: RIFAXIMIN
     Route: 065
  23. RIFAXIMIN [Concomitant]
     Active Substance: RIFAXIMIN
     Route: 065
  24. RIFAXIMIN [Concomitant]
     Active Substance: RIFAXIMIN
  25. METFORMIN [Concomitant]
     Active Substance: METFORMIN HYDROCHLORIDE
     Indication: Type 2 diabetes mellitus
  26. METFORMIN [Concomitant]
     Active Substance: METFORMIN HYDROCHLORIDE
     Route: 065
  27. METFORMIN [Concomitant]
     Active Substance: METFORMIN HYDROCHLORIDE
     Route: 065
  28. METFORMIN [Concomitant]
     Active Substance: METFORMIN HYDROCHLORIDE
  29. Insulina Humulin R [Concomitant]
     Indication: Type 2 diabetes mellitus
     Dosage: UNK, BID; DOSE; 15 U TWICE A DAY
  30. Insulina Humulin R [Concomitant]
     Dosage: UNK, BID; DOSE; 15 U TWICE A DAY
     Route: 065
  31. Insulina Humulin R [Concomitant]
     Dosage: UNK, BID; DOSE; 15 U TWICE A DAY
     Route: 065
  32. Insulina Humulin R [Concomitant]
     Dosage: UNK, BID; DOSE; 15 U TWICE A DAY

REACTIONS (3)
  - Cardiogenic shock [Recovered/Resolved]
  - Atrioventricular block complete [Recovered/Resolved]
  - Drug interaction [Recovered/Resolved]
